FAERS Safety Report 15658221 (Version 1)
Quarter: 2018Q4

REPORT INFORMATION
  Report Type: Other
  Country: US (occurrence: US)
  Receive Date: 20181126
  Receipt Date: 20181126
  Transmission Date: 20190205
  Serious: Yes (Other)
  Sender: FDA-Public Use
  Company Number: US-FRESENIUS KABI-FK201811893

PATIENT
  Age: 66 Year
  Sex: Male

DRUGS (2)
  1. MESNA (MANUFACTURER UNKNOWN) [Suspect]
     Active Substance: MESNA
     Indication: SARCOMATOID CARCINOMA OF THE LUNG
     Route: 065
  2. IFOSFAMIDE (MANUFACTURER UNKNOWN) [Suspect]
     Active Substance: IFOSFAMIDE
     Indication: SARCOMATOID CARCINOMA OF THE LUNG
     Route: 065

REACTIONS (1)
  - Neutropenia [Unknown]
